FAERS Safety Report 20329032 (Version 11)
Quarter: 2022Q3

REPORT INFORMATION
  Report Type: Spontaneous
  Country: US (occurrence: US)
  Receive Date: 20220112
  Receipt Date: 20220922
  Transmission Date: 20221027
  Serious: Yes (Other)
  Sender: FDA-Public Use
  Company Number: US-PFIZER INC-202200038308

PATIENT
  Age: 70 Year
  Sex: Male

DRUGS (1)
  1. TOVIAZ [Suspect]
     Active Substance: FESOTERODINE FUMARATE
     Indication: Urinary incontinence
     Dosage: UNK

REACTIONS (5)
  - Parkinson^s disease [Unknown]
  - Drug dependence [Unknown]
  - Paraesthesia [Unknown]
  - Circumstance or information capable of leading to medication error [Unknown]
  - Product packaging quantity issue [Unknown]
